FAERS Safety Report 23581710 (Version 2)
Quarter: 2024Q1

REPORT INFORMATION
  Report Type: Spontaneous
  Country: US (occurrence: US)
  Receive Date: 20240229
  Receipt Date: 20240322
  Transmission Date: 20240410
  Serious: Yes (Hospitalization)
  Sender: FDA-Public Use
  Company Number: US-BRISTOL-MYERS SQUIBB COMPANY-2024-031528

PATIENT
  Age: 74 Year
  Sex: Female

DRUGS (1)
  1. LENALIDOMIDE [Suspect]
     Active Substance: LENALIDOMIDE
     Indication: Plasma cell myeloma
     Dosage: FREQUENCY- TAKE 1 CAPSULE WHOLE BY MOUTH WITH WATER AT SAME TIME DAILY ON DAYS 1-14 OF EACH 21 DAY C
     Route: 048

REACTIONS (4)
  - Cardiac disorder [Recovering/Resolving]
  - Peripheral swelling [Recovering/Resolving]
  - Off label use [Unknown]
  - Muscle spasms [Unknown]
